FAERS Safety Report 5186337-X (Version None)
Quarter: 2006Q4

REPORT INFORMATION
  Report Type: 
  Country: None (occurrence: None)
  Receive Date: 20061213
  Receipt Date: 20061130
  Transmission Date: 20070319
  Serious: Yes (Other)
  Sender: FDA-Public Use
  Company Number: 2006117219

PATIENT
  Age: 43 Year
  Sex: Female
  Weight: 73 kg

DRUGS (3)
  1. LYRICA [Suspect]
     Indication: NEURALGIA
     Dosage: 325 MG, ORAL
     Route: 048
     Dates: start: 20060301, end: 20060901
  2. LYRICA [Suspect]
     Indication: RADICULOPATHY
     Dosage: 325 MG, ORAL
     Route: 048
     Dates: start: 20060301, end: 20060901
  3. L-POLAMIDON (METHADONE HYDROCHLORIDE) [Suspect]
     Dosage: 60 DROP (3 IN 1 D), ORAL
     Route: 048
     Dates: start: 20060809

REACTIONS (3)
  - CONDITION AGGRAVATED [None]
  - DRUG INTERACTION [None]
  - GENERALISED OEDEMA [None]
